FAERS Safety Report 5688854-2 (Version None)
Quarter: 2008Q1

REPORT INFORMATION
  Report Type: 
  Country: None (occurrence: None)
  Receive Date: 20080331
  Receipt Date: 20050412
  Transmission Date: 20080703
  Serious: Yes (Death)
  Sender: FDA-Public Use
  Company Number: BR-ROCHE-401820

PATIENT
  Sex: Female

DRUGS (1)
  1. XELODA [Suspect]
     Route: 048
     Dates: start: 20050301, end: 20050406

REACTIONS (1)
  - DEATH [None]
